FAERS Safety Report 12907270 (Version 5)
Quarter: 2018Q2

REPORT INFORMATION
  Report Type: Report from Study
  Country: DE (occurrence: DE)
  Receive Date: 20161103
  Receipt Date: 20180424
  Transmission Date: 20180711
  Serious: Yes (Other)
  Sender: FDA-Public Use
  Company Number: DE-SA-2016SA198293

PATIENT
  Age: 29 Year
  Sex: Female

DRUGS (5)
  1. IRON [Concomitant]
     Active Substance: IRON
     Route: 065
  2. LEMTRADA [Suspect]
     Active Substance: ALEMTUZUMAB
     Indication: MULTIPLE SCLEROSIS
     Route: 041
     Dates: start: 20160920, end: 20160922
  3. LEMTRADA [Suspect]
     Active Substance: ALEMTUZUMAB
     Indication: MULTIPLE SCLEROSIS
     Route: 041
     Dates: start: 20150609, end: 20150614
  4. FOLIC ACID. [Concomitant]
     Active Substance: FOLIC ACID
     Route: 065
  5. MAGNESIUM [Concomitant]
     Active Substance: MAGNESIUM
     Route: 065

REACTIONS (23)
  - Groin abscess [Not Recovered/Not Resolved]
  - Abscess [Unknown]
  - Insomnia [Unknown]
  - Weight increased [Unknown]
  - Protein urine present [Recovered/Resolved]
  - Fatigue [Not Recovered/Not Resolved]
  - Restlessness [Unknown]
  - White blood cells urine positive [Unknown]
  - Muscle twitching [Unknown]
  - Back pain [Unknown]
  - Maternal exposure before pregnancy [Unknown]
  - Stress [Unknown]
  - Thyroid disorder [Unknown]
  - Asthenia [Unknown]
  - Subcutaneous abscess [Unknown]
  - Caesarean section [Unknown]
  - Mucosal inflammation [Unknown]
  - Pain [Unknown]
  - Abscess limb [Unknown]
  - Alopecia [Not Recovered/Not Resolved]
  - Dysuria [Recovered/Resolved]
  - Acne [Unknown]
  - Cyst [Unknown]

NARRATIVE: CASE EVENT DATE: 2016
